FAERS Safety Report 8059750 (Version 2)
Quarter: 2012Q4

REPORT INFORMATION
  Report Type: 
  Country: US (occurrence: US)
  Receive Date: 20110728
  Receipt Date: 20120917
  Transmission Date: 20130627
  Serious: Yes (Other)
  Sender: FDA-Public Use
  Company Number: US-US-EMD SERONO, INC.-7072409

PATIENT
  Age: 31 None
  Sex: Female
  Weight: 96 kg

DRUGS (6)
  1. REBIF [Suspect]
     Indication: MULTIPLE SCLEROSIS
     Route: 058
     Dates: start: 2004, end: 201012
  2. REBIF [Suspect]
     Route: 058
     Dates: start: 20110620
  3. ARAVA [Concomitant]
     Indication: PRODUCT USED FOR UNKNOWN INDICATION
     Route: 048
  4. PROVIGIL [Concomitant]
     Indication: PRODUCT USED FOR UNKNOWN INDICATION
     Route: 048
     Dates: start: 20100302
  5. MAXALT-MLT [Concomitant]
     Indication: MIGRAINE
     Dosage: at onset of migraine
     Route: 048
     Dates: start: 20100302
  6. AMANTADINE [Concomitant]
     Indication: PRODUCT USED FOR UNKNOWN INDICATION
     Dosage: one capsule by mouth am and early afternoon
     Route: 048
     Dates: start: 20110625

REACTIONS (3)
  - Rheumatoid arthritis [Not Recovered/Not Resolved]
  - Injection site erythema [Unknown]
  - Injection site urticaria [Unknown]
